FAERS Safety Report 8986992 (Version 2)
Quarter: 2013Q1

REPORT INFORMATION
  Report Type: Spontaneous
  Country: JP (occurrence: JP)
  Receive Date: 20121226
  Receipt Date: 20130129
  Transmission Date: 20140127
  Serious: Yes (Life-Threatening, Other)
  Sender: FDA-Public Use
  Company Number: JP-ABBOTT-12P-087-1021258-00

PATIENT
  Age: 45 Year
  Sex: Male
  Weight: 61 kg

DRUGS (17)
  1. ULTANE [Suspect]
     Indication: ANAESTHESIA
     Route: 055
     Dates: start: 20110808, end: 20110808
  2. ULTANE [Suspect]
  3. TRYPTANOL [Suspect]
     Indication: DEPRESSION
  4. REMIFENTANIL HYDROCHLOROTHIAZIDE [Concomitant]
     Indication: ANAESTHESIA
     Route: 042
     Dates: start: 20110808, end: 20110808
  5. REMIFENTANIL HYDROCHLOROTHIAZIDE [Concomitant]
     Dates: start: 20110808, end: 20110808
  6. THYRADIN [Concomitant]
  7. ANTIANXIETY MEDICATION [Concomitant]
  8. CLOTIAZEPAM [Concomitant]
     Indication: PSYCHIATRIC SYMPTOM
  9. SODIUM VALPROATE [Concomitant]
     Indication: PSYCHIATRIC SYMPTOM
  10. TRIAZOLAM [Concomitant]
     Indication: PSYCHIATRIC SYMPTOM
  11. CLOXAZOLAM [Concomitant]
     Indication: PSYCHIATRIC SYMPTOM
  12. LEVOTHYROXINE SODIUM [Concomitant]
     Indication: THYROIDECTOMY
     Dates: start: 1986
  13. ALFACALCIDOL [Concomitant]
     Indication: RENAL IMPAIRMENT
  14. POTASSIUM CHLORIDE [Concomitant]
     Indication: RENAL IMPAIRMENT
  15. ALLOPURINOL [Concomitant]
     Indication: RENAL IMPAIRMENT
  16. CALCIUM CHLORIDE [Concomitant]
     Indication: RENAL IMPAIRMENT
  17. PROPOFOL [Concomitant]
     Indication: ANAESTHESIA
     Route: 042
     Dates: start: 20110808, end: 20110808

REACTIONS (1)
  - Hypotension [Recovering/Resolving]
